FAERS Safety Report 20151939 (Version 1)
Quarter: 2021Q4

REPORT INFORMATION
  Report Type: Spontaneous
  Country: US (occurrence: None)
  Receive Date: 20211204
  Receipt Date: 20211204
  Transmission Date: 20220303
  Serious: Yes (Life-Threatening, Hospitalization)
  Sender: FDA-Public Use
  Company Number: None

PATIENT
  Age: 24 Year
  Sex: Male
  Weight: 79.56 kg

DRUGS (1)
  1. REMICADE [Suspect]
     Active Substance: INFLIXIMAB
     Indication: Crohn^s disease
     Dosage: OTHER FREQUENCY : 0, 2, 6 THEN Q8 WK;?
     Route: 041
     Dates: start: 20211202, end: 20211202

REACTIONS (9)
  - Malaise [None]
  - Dysphagia [None]
  - Dyspnoea [None]
  - Chest discomfort [None]
  - Tachycardia [None]
  - Pallor [None]
  - Chills [None]
  - Cyanosis [None]
  - Chills [None]

NARRATIVE: CASE EVENT DATE: 20211202
